FAERS Safety Report 18579625 (Version 1)
Quarter: 2020Q4

REPORT INFORMATION
  Report Type: Spontaneous
  Country: US (occurrence: US)
  Receive Date: 20201204
  Receipt Date: 20201204
  Transmission Date: 20210114
  Serious: No
  Sender: FDA-Public Use
  Company Number: US-SUNOVION-2020SUN003548

PATIENT
  Sex: Female

DRUGS (4)
  1. LATUDA [Suspect]
     Active Substance: LURASIDONE HYDROCHLORIDE
     Indication: POST-TRAUMATIC STRESS DISORDER
     Dosage: 40 MG
     Route: 048
     Dates: end: 20201120
  2. LATUDA [Suspect]
     Active Substance: LURASIDONE HYDROCHLORIDE
     Indication: EMPTY NEST SYNDROME
     Dosage: 20 MG
     Route: 048
  3. VENLAFAXIN [Concomitant]
     Active Substance: VENLAFAXINE HYDROCHLORIDE
     Indication: PRODUCT USED FOR UNKNOWN INDICATION
     Dosage: UNK
  4. LATUDA [Suspect]
     Active Substance: LURASIDONE HYDROCHLORIDE
     Indication: CRYING

REACTIONS (3)
  - Feeling abnormal [Not Recovered/Not Resolved]
  - Therapy cessation [Unknown]
  - Off label use [Unknown]
